FAERS Safety Report 4803639-4 (Version None)
Quarter: 2005Q4

REPORT INFORMATION
  Report Type: 
  Country: None (occurrence: None)
  Receive Date: 20051014
  Receipt Date: 20050628
  Transmission Date: 20060501
  Serious: No
  Sender: FDA-Public Use
  Company Number: 05P-163-0303833-00

PATIENT
  Age: 61 Year
  Sex: Male
  Weight: 101 kg

DRUGS (15)
  1. KALETRA [Suspect]
     Indication: PROPHYLAXIS
     Dosage: 3 CAPSULE, 2 IN 1 D, PER ORAL
     Route: 048
     Dates: start: 20050314, end: 20050316
  2. ZIDOVUDINE W/ LAMIVUDINE [Concomitant]
  3. ASPIRIN [Concomitant]
  4. INSULIN [Concomitant]
  5. CARVEDILOL [Concomitant]
  6. CARDIA [Concomitant]
  7. CLOPIDOGREL BISULFATE [Concomitant]
  8. METFORMIN HCL [Concomitant]
  9. GLIMEPIRIDE [Concomitant]
  10. ALTASE [Concomitant]
  11. ATORVASTATIN CALCIUM [Concomitant]
  12. IRBESARTAN [Concomitant]
  13. HYDROCHLOROTHIAZIDE [Concomitant]
  14. FOLIC ACID [Concomitant]
  15. NICOTINIC ACID [Concomitant]

REACTIONS (2)
  - BRADYARRHYTHMIA [None]
  - DIZZINESS [None]
